FAERS Safety Report 16036862 (Version 1)
Quarter: 2019Q1

REPORT INFORMATION
  Report Type: Spontaneous
  Country: DK (occurrence: DK)
  Receive Date: 20190305
  Receipt Date: 20190305
  Transmission Date: 20190418
  Serious: Yes (Other)
  Sender: FDA-Public Use
  Company Number: DK-PFIZER INC-2019088765

PATIENT
  Age: 44 Year
  Sex: Female

DRUGS (2)
  1. VENLAFAXINE HCL [Suspect]
     Active Substance: VENLAFAXINE HYDROCHLORIDE
     Indication: POST-TRAUMATIC STRESS DISORDER
     Dosage: 75 MG, UNK
     Route: 048
     Dates: start: 20171109, end: 20171122
  2. VENLAFAXINE HCL [Suspect]
     Active Substance: VENLAFAXINE HYDROCHLORIDE
     Dosage: 150 MG, UNK
     Route: 048
     Dates: start: 20171123

REACTIONS (32)
  - Headache [Recovered/Resolved]
  - Nausea [Recovered/Resolved]
  - Hyperhidrosis [Recovered/Resolved]
  - Crying [Recovered/Resolved]
  - Suicidal ideation [Unknown]
  - Syncope [Unknown]
  - Photophobia [Unknown]
  - Dry mouth [Recovered/Resolved]
  - Derealisation [Unknown]
  - Lethargy [Unknown]
  - Flashback [Unknown]
  - Concussion [Unknown]
  - Hallucination, auditory [Recovered/Resolved]
  - Restlessness [Unknown]
  - Hyperacusis [Unknown]
  - Fatigue [Recovered/Resolved]
  - Tinnitus [Recovered/Resolved]
  - Hallucination [Recovered/Resolved]
  - Anger [Recovered/Resolved]
  - Visual impairment [Unknown]
  - Dizziness [Unknown]
  - Pollakiuria [Recovered/Resolved]
  - Neck pain [Unknown]
  - Post-traumatic neck syndrome [Unknown]
  - Disease recurrence [Unknown]
  - Syncope [Recovered/Resolved]
  - Asthenia [Recovered/Resolved]
  - Disease recurrence [Recovered/Resolved]
  - Constipation [Recovered/Resolved]
  - Anxiety [Recovered/Resolved]
  - Weight increased [Recovered/Resolved]
  - Ear pain [Unknown]

NARRATIVE: CASE EVENT DATE: 201711
